FAERS Safety Report 9347217 (Version 1)
Quarter: 2013Q2

REPORT INFORMATION
  Report Type: Spontaneous
  Country: BR (occurrence: BR)
  Receive Date: 20130613
  Receipt Date: 20130613
  Transmission Date: 20140414
  Serious: Yes (Death, Other)
  Sender: FDA-Public Use
  Company Number: BR-PFIZER INC-2013176266

PATIENT
  Age: 81 Year
  Sex: Female

DRUGS (4)
  1. LIPITOR [Suspect]
     Indication: BLOOD CHOLESTEROL
     Dosage: 20 MG, DAILY
     Route: 048
     Dates: start: 20110801
  2. LEXOTAN [Concomitant]
  3. SOMALGIN [Concomitant]
  4. VASOPRIL /BRA/ [Concomitant]

REACTIONS (2)
  - Pneumonia [Fatal]
  - Septic shock [Unknown]
